FAERS Safety Report 17685181 (Version 3)
Quarter: 2020Q2

REPORT INFORMATION
  Report Type: Spontaneous
  Country: BE (occurrence: BE)
  Receive Date: 20200420
  Receipt Date: 20200528
  Transmission Date: 20200714
  Serious: No
  Sender: FDA-Public Use
  Company Number: BE-JNJFOC-20200406949

PATIENT
  Sex: Female

DRUGS (2)
  1. DUROGESIC [Suspect]
     Active Substance: FENTANYL
     Dosage: 1 AND HALF PATCH
     Route: 062
  2. DUROGESIC [Suspect]
     Active Substance: FENTANYL
     Indication: PAIN
     Route: 062
     Dates: start: 20200403, end: 20200404

REACTIONS (3)
  - Product complaint [Unknown]
  - Underdose [Unknown]
  - Wrong technique in product usage process [Unknown]
